FAERS Safety Report 26196945 (Version 1)
Quarter: 2025Q4

REPORT INFORMATION
  Report Type: Report from Study
  Country: US (occurrence: US)
  Receive Date: 20251224
  Receipt Date: 20251224
  Transmission Date: 20260118
  Serious: Yes (Hospitalization, Other)
  Sender: NOVARTIS
  Company Number: US-002147023-NVSC2025US163780

PATIENT
  Age: 59 Year
  Sex: Female

DRUGS (6)
  1. KISQALI [Suspect]
     Active Substance: RIBOCICLIB SUCCINATE
     Indication: Hormone receptor negative HER2 positive breast cancer
     Dosage: 600 MG, QD
     Route: 048
     Dates: start: 20251012
  2. KISQALI [Suspect]
     Active Substance: RIBOCICLIB SUCCINATE
     Indication: Breast cancer metastatic
     Dosage: 2 CYCLE
     Route: 048
     Dates: start: 20251116, end: 20251213
  3. KISQALI [Suspect]
     Active Substance: RIBOCICLIB SUCCINATE
     Indication: Breast cancer
     Dosage: 3 CYCLE
     Route: 048
     Dates: start: 20251214
  4. KISQALI [Suspect]
     Active Substance: RIBOCICLIB SUCCINATE
     Dosage: 400 MG, QD
     Route: 048
  5. LETROZOLE [Suspect]
     Active Substance: LETROZOLE
     Indication: Product used for unknown indication
     Dosage: UNK
     Route: 065
  6. HYDROXYZINE HYDROCHLORIDE [Concomitant]
     Active Substance: HYDROXYZINE HYDROCHLORIDE
     Indication: Sleep disorder
     Dosage: UNK
     Route: 065

REACTIONS (16)
  - Electrocardiogram QT prolonged [Recovering/Resolving]
  - Arrhythmia [Unknown]
  - Neutrophil count decreased [Unknown]
  - Full blood count decreased [Unknown]
  - Cardiac disorder [Unknown]
  - Dizziness [Unknown]
  - Asthenia [Unknown]
  - Fatigue [Recovering/Resolving]
  - Insomnia [Unknown]
  - Ill-defined disorder [Unknown]
  - Malaise [Unknown]
  - Throat tightness [Unknown]
  - Chest pain [Unknown]
  - Oropharyngeal discomfort [Unknown]
  - Product storage error [Unknown]
  - Nausea [Recovering/Resolving]

NARRATIVE: CASE EVENT DATE: 20251116
